FAERS Safety Report 17361911 (Version 1)
Quarter: 2020Q1

REPORT INFORMATION
  Report Type: Spontaneous
  Country: GB (occurrence: GB)
  Receive Date: 20200203
  Receipt Date: 20200203
  Transmission Date: 20200409
  Serious: Yes (Other)
  Sender: FDA-Public Use
  Company Number: GB-MYLANLABS-MK-6035620

PATIENT
  Age: 45 Year

DRUGS (3)
  1. CALCICHEW-D3 [Concomitant]
     Active Substance: CALCIUM\CHOLECALCIFEROL
     Indication: OSTEOPOROSIS PROPHYLAXIS
     Dosage: 2 DOSAGE FORM, QD
     Route: 048
     Dates: start: 20051130
  2. CITALOPRAM [Suspect]
     Active Substance: CITALOPRAM HYDROBROMIDE
     Indication: ANXIETY
     Dosage: CITALOPRAM DOSE HAS BEEN AS HIGH AS 100MG IN THE PAST
     Route: 048
     Dates: start: 20030829
  3. ALENDRONIC ACID [Concomitant]
     Active Substance: ALENDRONIC ACID
     Indication: OSTEOPOROSIS PROPHYLAXIS
     Dosage: 70 MILLIGRAM
     Route: 048
     Dates: start: 20051130

REACTIONS (3)
  - Ventricular extrasystoles [Unknown]
  - Atrioventricular block second degree [Unknown]
  - Heart rate irregular [Unknown]
